FAERS Safety Report 5398018-8 (Version None)
Quarter: 2007Q3

REPORT INFORMATION
  Report Type: 
  Country: None (occurrence: None)
  Receive Date: 20070726
  Receipt Date: 20070102
  Transmission Date: 20080115
  Serious: No
  Sender: FDA-Public Use
  Company Number: US-BRISTOL-MYERS SQUIBB COMPANY-13629050

PATIENT
  Age: 80 Year
  Sex: Male

DRUGS (4)
  1. MAXIPIME [Suspect]
     Indication: KLEBSIELLA INFECTION
     Route: 042
     Dates: start: 20061226
  2. VANCOMYCIN [Concomitant]
     Indication: CLOSTRIDIAL INFECTION
     Route: 048
  3. COREG [Concomitant]
  4. RANITIDINE [Concomitant]

REACTIONS (1)
  - CONFUSIONAL STATE [None]
